FAERS Safety Report 9637155 (Version 1)
Quarter: 2013Q4

REPORT INFORMATION
  Report Type: Spontaneous
  Country: IT (occurrence: IT)
  Receive Date: 20131022
  Receipt Date: 20131022
  Transmission Date: 20140711
  Serious: Yes (Hospitalization)
  Sender: FDA-Public Use
  Company Number: IT-ACCORD-020011

PATIENT
  Age: 54 Year
  Sex: Female
  Weight: 115 kg

DRUGS (4)
  1. GEMCITABINE [Suspect]
     Indication: OVARIAN CANCER
     Route: 042
     Dates: start: 20130301, end: 20130701
  2. CODEINE W/PARACETAMOL [Suspect]
     Indication: PAIN
     Route: 048
     Dates: start: 20130101, end: 20130301
  3. ENOXAPARIN [Concomitant]
  4. OMEPRAZOLE [Concomitant]

REACTIONS (2)
  - Hepatitis cholestatic [Recovered/Resolved with Sequelae]
  - Off label use [Unknown]
